FAERS Safety Report 9258330 (Version 1)
Quarter: 2013Q2

REPORT INFORMATION
  Report Type: Spontaneous
  Country: ZA (occurrence: None)
  Receive Date: 20130422
  Receipt Date: 20130422
  Transmission Date: 20140414
  Serious: Yes (Death, Other)
  Sender: FDA-Public Use
  Company Number: FK201301220

PATIENT
  Age: 45 Year
  Sex: Male

DRUGS (3)
  1. TOBRAMYCIN [Suspect]
     Indication: SEPSIS
     Dosage: 80 MG, 8 H VIA NASOGASTRIC TUBE, OTHER
     Dates: start: 20110830
  2. COLISTIN [Suspect]
     Indication: SEPSIS
     Dosage: 1 MU IVI EVERY 8 HOURS,
  3. TIGECYCLINE [Suspect]
     Indication: SEPSIS
     Dosage: 200 MG LOADING DOSE, INTRAVENOUS
     Route: 042

REACTIONS (3)
  - Hypotension [None]
  - Drug resistance [None]
  - Klebsiella test positive [None]
